FAERS Safety Report 7707028-4 (Version None)
Quarter: 2011Q3

REPORT INFORMATION
  Report Type: 
  Country: None (occurrence: None)
  Receive Date: 20110824
  Receipt Date: 20110817
  Transmission Date: 20111222
  Serious: Yes (Other)
  Sender: FDA-Public Use
  Company Number: US-PFIZER INC-2011189813

PATIENT
  Sex: Male
  Weight: 112 kg

DRUGS (4)
  1. CYCLOSPORINE [Concomitant]
     Dosage: UNK
  2. MEPERIDINE HCL [Concomitant]
     Dosage: UNK
  3. PREDNISONE [Concomitant]
     Dosage: UNK
  4. ATGAM [Suspect]
     Indication: APLASTIC ANAEMIA
     Dosage: UNK
     Route: 042
     Dates: start: 20110816

REACTIONS (1)
  - HEPATIC ENZYME INCREASED [None]
